FAERS Safety Report 25062505 (Version 1)
Quarter: 2025Q1

REPORT INFORMATION
  Report Type: Spontaneous
  Country: US (occurrence: US)
  Receive Date: 20250311
  Receipt Date: 20250311
  Transmission Date: 20250409
  Serious: Yes (Hospitalization, Other)
  Sender: DIFGEN PHARMACEUTICALS LLC
  Company Number: US-Difgen-011957

PATIENT
  Age: 44 Year
  Sex: Male

DRUGS (1)
  1. FENTANYL [Suspect]
     Active Substance: FENTANYL
     Indication: Product used for unknown indication
     Route: 048

REACTIONS (5)
  - Empyema [Recovered/Resolved]
  - Pneumonia [Recovered/Resolved]
  - Foreign body aspiration [Recovered/Resolved]
  - Foreign body in respiratory tract [Recovered/Resolved]
  - Incorrect route of product administration [Unknown]
